FAERS Safety Report 14101773 (Version 6)
Quarter: 2017Q4

REPORT INFORMATION
  Report Type: Report from Study
  Country: LB (occurrence: LB)
  Receive Date: 20171018
  Receipt Date: 20171226
  Transmission Date: 20180321
  Serious: Yes (Death, Hospitalization, Other)
  Sender: FDA-Public Use
  Company Number: PHHY2017LB151325

PATIENT
  Age: 86 Year
  Sex: Female

DRUGS (2)
  1. ENTRESTO [Suspect]
     Active Substance: SACUBITRIL\VALSARTAN
     Indication: PRODUCT USED FOR UNKNOWN INDICATION
     Dosage: 50 MG, BID
     Route: 048
     Dates: start: 20170720, end: 20170803
  2. ENTRESTO [Suspect]
     Active Substance: SACUBITRIL\VALSARTAN
     Dosage: 50 MG, QD
     Route: 048
     Dates: start: 20170808

REACTIONS (12)
  - Inappropriate schedule of drug administration [Not Recovered/Not Resolved]
  - Weight decreased [Unknown]
  - Infection [Fatal]
  - Electrolyte imbalance [Unknown]
  - Hypotension [Unknown]
  - Diarrhoea [Not Recovered/Not Resolved]
  - Ejection fraction decreased [Unknown]
  - Underdose [Not Recovered/Not Resolved]
  - Asthenia [Fatal]
  - Sepsis [Fatal]
  - Pulmonary oedema [Recovering/Resolving]
  - Hypophagia [Fatal]

NARRATIVE: CASE EVENT DATE: 20170808
